FAERS Safety Report 9713701 (Version 1)
Quarter: 2013Q4

REPORT INFORMATION
  Report Type: Report from Study
  Country: NL (occurrence: NL)
  Receive Date: 20131126
  Receipt Date: 20131126
  Transmission Date: 20140711
  Serious: Yes (Other)
  Sender: FDA-Public Use
  Company Number: NL-MYLANLABS-2013S1026060

PATIENT
  Sex: Female

DRUGS (5)
  1. OMEPRAZOLE [Suspect]
     Indication: GASTROOESOPHAGEAL REFLUX DISEASE
     Dosage: 40MG DAILY
     Route: 065
  2. ATENOLOL [Suspect]
     Indication: HYPERTENSION
     Dosage: 25 [SIC]
     Route: 065
  3. SIMVASTATIN [Concomitant]
     Indication: HYPERCHOLESTEROLAEMIA
     Dosage: 20MG
     Route: 065
  4. CANDESARTAN CILEXETIL [Concomitant]
     Indication: HYPERTENSION
     Route: 065
  5. LEVOTHYROXINE SODIUM [Concomitant]
     Indication: HYPOTHYROIDISM
     Route: 065

REACTIONS (1)
  - Subacute cutaneous lupus erythematosus [Recovered/Resolved]
